FAERS Safety Report 21346033 (Version 1)
Quarter: 2022Q3

REPORT INFORMATION
  Report Type: Spontaneous
  Country: BE (occurrence: BE)
  Receive Date: 20220916
  Receipt Date: 20220916
  Transmission Date: 20221027
  Serious: Yes (Other)
  Sender: FDA-Public Use
  Company Number: BE-INCYTE CORPORATION-2022IN008786

PATIENT
  Age: 74 Year
  Sex: Male

DRUGS (2)
  1. ICLUSIG [Suspect]
     Active Substance: PONATINIB
     Indication: Product used for unknown indication
     Dosage: 45 MILLIGRAM, QD
     Route: 065
  2. ICLUSIG [Suspect]
     Active Substance: PONATINIB
     Dosage: 15 MILLIGRAM, QD
     Route: 065

REACTIONS (2)
  - Urinary retention [Unknown]
  - Aortic thrombosis [Unknown]
